FAERS Safety Report 25747438 (Version 1)
Quarter: 2025Q3

REPORT INFORMATION
  Report Type: Spontaneous
  Country: US (occurrence: US)
  Receive Date: 20250901
  Receipt Date: 20250901
  Transmission Date: 20251020
  Serious: No
  Sender: ROCHE
  Company Number: US-ROCHE-10000372295

PATIENT
  Age: 71 Year
  Sex: Male
  Weight: 105.68 kg

DRUGS (1)
  1. GAZYVA [Suspect]
     Active Substance: OBINUTUZUMAB
     Indication: Chronic lymphocytic leukaemia
     Dosage: DAY 1: 100 MG, DAY 2: 900 MG, DAY 3: 1,000 MG. REPEAT CYCLE EVERY 28 DAYS.
     Route: 042
     Dates: start: 20250820

REACTIONS (1)
  - Infusion related reaction [Recovered/Resolved]

NARRATIVE: CASE EVENT DATE: 20250820
